FAERS Safety Report 9644100 (Version 2)
Quarter: 2013Q4

REPORT INFORMATION
  Report Type: Report from Study
  Country: NL (occurrence: NL)
  Receive Date: 20131024
  Receipt Date: 20131024
  Transmission Date: 20140711
  Serious: Yes (Other)
  Sender: FDA-Public Use
  Company Number: NL-ABBVIE-11P-114-0836581-00

PATIENT
  Sex: Female
  Weight: 103 kg

DRUGS (3)
  1. LUCRIN DEPOT 11.25 MG [Suspect]
     Indication: BREAST CANCER FEMALE
     Route: 058
     Dates: start: 20101015
  2. INTERFERON BETA [Concomitant]
     Indication: MULTIPLE SCLEROSIS
     Dosage: 1 A 30 INJPWDR 6 ME VIAL 2 NDL
     Dates: start: 2005
  3. TAMOXIFEN [Concomitant]
     Indication: BREAST CANCER FEMALE
     Route: 048

REACTIONS (4)
  - Breast neoplasm [Not Recovered/Not Resolved]
  - Hot flush [Not Recovered/Not Resolved]
  - Weight increased [Recovered/Resolved with Sequelae]
  - Solar lentigo [Not Recovered/Not Resolved]
